FAERS Safety Report 4627196-0 (Version None)
Quarter: 2005Q1

REPORT INFORMATION
  Report Type: 
  Country: None (occurrence: None)
  Receive Date: 20050331
  Receipt Date: 20050315
  Transmission Date: 20050727
  Serious: Yes (Death)
  Sender: FDA-Public Use
  Company Number: 2005-UK-00454UK

PATIENT
  Sex: Male

DRUGS (16)
  1. ATROVENT [Suspect]
  2. LACTULOSE (LACTULOSE) (NR) [Concomitant]
  3. FUROSEMIDE [Concomitant]
  4. UNIPHYLLIN (NR) [Concomitant]
  5. OMEPRAZOLE [Concomitant]
  6. SALAMOL NEBULISER (SALBUTAMOL SULFATE) (NR) [Concomitant]
  7. PEPTAC (PEPTAC) (NR) [Concomitant]
  8. SYMBICORT TURBUHALER (BUDESONIDE W/FORMOTEROL FUMARATE) (NR) [Concomitant]
  9. MEBEVERINE (MEBEVERINE) (NR) [Concomitant]
  10. PREDNISOLONE [Concomitant]
  11. PARACETAMOL (PARACETAMOL) (NR) [Concomitant]
  12. CARBOCISTEINE (CARBOCISTEINE) (NR) [Concomitant]
  13. ASPIRIN [Concomitant]
  14. FINASTERIDE (FINASTERIDE) (NR) [Concomitant]
  15. BETAHISTINE (BETAHISTINE) (NR) [Concomitant]
  16. RISEDRONATE (RISEDRONATE SODIUM) (NR) [Concomitant]

REACTIONS (2)
  - CHRONIC OBSTRUCTIVE PULMONARY DISEASE [None]
  - LOWER RESPIRATORY TRACT INFECTION [None]
